FAERS Safety Report 18596857 (Version 1)
Quarter: 2020Q4

REPORT INFORMATION
  Report Type: Spontaneous
  Country: US (occurrence: US)
  Receive Date: 20201209
  Receipt Date: 20201209
  Transmission Date: 20210114
  Serious: Yes (Hospitalization, Other)
  Sender: FDA-Public Use
  Company Number: US-PFIZER INC-2020483819

PATIENT
  Age: 67 Year
  Sex: Male
  Weight: 75.3 kg

DRUGS (6)
  1. PREDNISONE. [Suspect]
     Active Substance: PREDNISONE
     Indication: COLITIS ULCERATIVE
     Dosage: 56 MG, 1X/DAY
     Dates: start: 20201114
  2. XELJANZ XR [Suspect]
     Active Substance: TOFACITINIB CITRATE
     Indication: COLITIS ULCERATIVE
     Dosage: 11 MG, DAILY (11MG; TAKE ONE BY MOUTH DAILY)
     Route: 048
     Dates: start: 20200624, end: 20201030
  3. XELJANZ [Suspect]
     Active Substance: TOFACITINIB CITRATE
     Indication: COLITIS ULCERATIVE
     Dosage: 10 MG, 2X/DAY (10MG; TAKE ONE TWICE DAILY BY MOUTH)
     Route: 048
     Dates: start: 20181119
  4. PREDNISONE. [Suspect]
     Active Substance: PREDNISONE
     Dosage: 40 MG, 1X/DAY (TAKE FIVE ONCE DAILY BY MOUTH (DOSE REDUCED TO 40MG STARTED AT 56MG))
     Route: 048
  5. METHOTREXATE. [Concomitant]
     Active Substance: METHOTREXATE
     Dosage: UNK
  6. PANTOPRAZOLE [Suspect]
     Active Substance: PANTOPRAZOLE
     Indication: NAUSEA
     Dosage: 20 MG, 2X/DAY
     Route: 048

REACTIONS (11)
  - Rectal haemorrhage [Recovering/Resolving]
  - Exposure to SARS-CoV-2 [Unknown]
  - Nausea [Recovered/Resolved]
  - Weight decreased [Unknown]
  - Dehydration [Unknown]
  - Diarrhoea [Recovering/Resolving]
  - Anaemia [Unknown]
  - Vomiting [Recovered/Resolved]
  - Lethargy [Unknown]
  - Bowel movement irregularity [Unknown]
  - Condition aggravated [Unknown]

NARRATIVE: CASE EVENT DATE: 202009
